FAERS Safety Report 10757308 (Version 1)
Quarter: 2015Q1

REPORT INFORMATION
  Report Type: Spontaneous
  Country: RO (occurrence: None)
  Receive Date: 20150130
  Receipt Date: 20150130
  Transmission Date: 20150721
  Serious: Yes (Hospitalization, Other)
  Sender: FDA-Public Use
  Company Number: 2015COR00018

PATIENT
  Age: 64 Year
  Sex: Male

DRUGS (8)
  1. IBUPROFEN (IBUPROFEN) [Suspect]
     Active Substance: IBUPROFEN
     Indication: PAIN
  2. CELECOXIB (CELECOXIB) [Suspect]
     Active Substance: CELECOXIB
     Indication: PAIN
  3. KETOROLAC (KETOROLAC) [Suspect]
     Active Substance: KETOROLAC TROMETHAMINE
     Indication: PAIN
     Dosage: 2 UNK
  4. PIROXICAM. [Suspect]
     Active Substance: PIROXICAM
     Indication: PAIN
  5. MELOXICAM (MELOXICAM) UNKNOWN [Suspect]
     Active Substance: MELOXICAM
     Indication: PAIN
  6. ALGOCALMINE [Suspect]
     Active Substance: METAMIZOLE SODIUM
     Indication: PAIN
     Dosage: 2 UNK, 1X/DAY
  7. BISEPTOL [Suspect]
     Active Substance: SULFAMETHOXAZOLE\TRIMETHOPRIM
     Indication: URINARY TRACT INFECTION
     Dosage: 3 TABLETS, 1X/DAY
  8. ANTINEVRALGIC [Suspect]
     Active Substance: ASPIRIN\CAFFEINE\PHENACETIN
     Indication: PAIN

REACTIONS (9)
  - Rhabdomyolysis [None]
  - Oliguria [None]
  - Hyponatraemia [None]
  - Hyperuricaemia [None]
  - Drug interaction [None]
  - Polyneuropathy [None]
  - Oedema [None]
  - Hypocalcaemia [None]
  - Acidosis [None]
